FAERS Safety Report 9358991 (Version 1)
Quarter: 2013Q2

REPORT INFORMATION
  Report Type: Spontaneous
  Country: CZ (occurrence: None)
  Receive Date: 20130617
  Receipt Date: 20130617
  Transmission Date: 20140414
  Serious: Yes (Hospitalization, Other)
  Sender: FDA-Public Use
  Company Number: IPC201306-000224

PATIENT
  Age: 66 Year
  Sex: Female
  Weight: 81 kg

DRUGS (11)
  1. METOPROLOL TARTRATE [Suspect]
     Dosage: 200 MG/DAY
  2. FUROSEMIDE [Suspect]
     Dosage: 60 MG/DAY
  3. LOSARTAN [Suspect]
     Dosage: 100 MG/DAY
  4. AMLODIPINE BESILATE [Suspect]
     Dosage: 5 MG/DAY
  5. PROPAFENONE [Suspect]
     Indication: PROPHYLAXIS
     Dosage: STOPPED
  6. CYCLOSPORINE [Suspect]
     Dosage: 175 MG/DAY
  7. AZATHIOPRINE [Suspect]
     Dosage: 50 MG/DAY
  8. RILMENIDINE [Suspect]
     Dosage: 1 MG/DAY
  9. CAPTOPRIL [Suspect]
     Dosage: AS NEEDED
  10. ACETYLSALICYLIC ACID [Suspect]
     Dosage: 100 MG/DAY
  11. ISOSORBIDE MONONITRATE [Suspect]
     Dosage: 20 MG/DAY

REACTIONS (5)
  - Fatigue [None]
  - Dyspnoea [None]
  - Cardiac failure [None]
  - Atrial fibrillation [None]
  - Drug interaction [None]
